FAERS Safety Report 22020848 (Version 2)
Quarter: 2023Q2

REPORT INFORMATION
  Report Type: Spontaneous
  Country: SE (occurrence: SE)
  Receive Date: 20230222
  Receipt Date: 20230509
  Transmission Date: 20230722
  Serious: Yes (Hospitalization)
  Sender: FDA-Public Use
  Company Number: None

PATIENT
  Age: 66 Year
  Sex: Female
  Weight: 62 kg

DRUGS (5)
  1. ZOLEDRONIC ACID [Suspect]
     Active Substance: ZOLEDRONIC ACID
     Indication: Osteoporosis
     Dosage: STRENGTH 4MG/5MG, DOSE 6.25 ML IN 100 ML NACL 1ST DROP OF 3, SCHEDULED ONCE/YEAR
     Route: 042
     Dates: start: 20221116, end: 20221116
  2. Calcichew D-3 Citron [Concomitant]
     Indication: Product used for unknown indication
     Dosage: 1X2
     Dates: start: 20221103
  3. Betolvex [Concomitant]
     Indication: Product used for unknown indication
     Dosage: DOSAGE FORM: FILM-COATED TABLET
     Dates: start: 20210517
  4. ACETAMINOPHEN\CODEINE PHOSPHATE [Concomitant]
     Active Substance: ACETAMINOPHEN\CODEINE PHOSPHATE
     Indication: Product used for unknown indication
     Dosage: 500 MG/30 MG 1-2 TABLETS MAX. 4 TIMES PER DAY?DOSAGE FORM: TABLET
     Route: 048
     Dates: start: 20221116, end: 20221116
  5. IBUPROFEN [Concomitant]
     Active Substance: IBUPROFEN
     Indication: Product used for unknown indication
     Dates: start: 20221116, end: 20221116

REACTIONS (11)
  - Dysstasia [Recovered/Resolved]
  - Gait inability [Recovered/Resolved]
  - Mobility decreased [Recovered/Resolved]
  - Fear of death [Recovering/Resolving]
  - Malaise [Recovering/Resolving]
  - Musculoskeletal stiffness [Recovered/Resolved]
  - Headache [Recovering/Resolving]
  - Dyspnoea [Recovered/Resolved]
  - Muscle spasms [Recovered/Resolved]
  - Pain [Recovering/Resolving]
  - Acute phase reaction [Recovering/Resolving]

NARRATIVE: CASE EVENT DATE: 20221116
